FAERS Safety Report 10227970 (Version 1)
Quarter: 2014Q2

REPORT INFORMATION
  Report Type: Spontaneous
  Country: GB (occurrence: None)
  Receive Date: 20140606
  Receipt Date: 20140606
  Transmission Date: 20141212
  Serious: Yes (Other)
  Sender: FDA-Public Use
  Company Number: 2014RR-81805

PATIENT
  Age: 10 Year
  Sex: Female

DRUGS (3)
  1. AMOXICILLIN [Suspect]
     Indication: INFECTION
     Route: 048
     Dates: start: 20140509
  2. CALPOL [Concomitant]
  3. CALPOL [Concomitant]

REACTIONS (1)
  - Malaise [None]
